FAERS Safety Report 15469975 (Version 4)
Quarter: 2018Q4

REPORT INFORMATION
  Report Type: Spontaneous
  Country: FR (occurrence: FR)
  Receive Date: 20181005
  Receipt Date: 20181211
  Transmission Date: 20190205
  Serious: No
  Sender: FDA-Public Use
  Company Number: FR-009507513-1810FRA000163

PATIENT
  Sex: Female
  Weight: 45 kg

DRUGS (3)
  1. SINEMET [Suspect]
     Active Substance: CARBIDOPA\LEVODOPA
     Dosage: UNK UNK, QD, DOSE INCREASED
     Route: 048
     Dates: start: 20180618, end: 20181002
  2. MIRTAZAPINE. [Suspect]
     Active Substance: MIRTAZAPINE
     Indication: SOMNOLENCE
     Dosage: 15 MILLIGRAM, QPM (EVENING)
     Dates: start: 20180330
  3. SINEMET [Suspect]
     Active Substance: CARBIDOPA\LEVODOPA
     Indication: DEMENTIA WITH LEWY BODIES
     Dosage: 1 DOSAGE FORM, TID (3 DF, QD)
     Route: 048
     Dates: start: 20180518, end: 2018

REACTIONS (2)
  - Drug ineffective [Not Recovered/Not Resolved]
  - Gastric disorder [Unknown]

NARRATIVE: CASE EVENT DATE: 2018
